FAERS Safety Report 24128942 (Version 2)
Quarter: 2024Q3

REPORT INFORMATION
  Report Type: Spontaneous
  Country: US (occurrence: US)
  Receive Date: 20240723
  Receipt Date: 20240827
  Transmission Date: 20241017
  Serious: Yes (Other)
  Sender: GENMAB
  Company Number: US-GENMAB-2024-02614

PATIENT
  Age: 79 Year
  Sex: Female
  Weight: 60 kg

DRUGS (16)
  1. EPCORITAMAB [Suspect]
     Active Substance: EPCORITAMAB
     Dosage: UNK
     Route: 065
     Dates: start: 20231107
  2. EPCORITAMAB [Suspect]
     Active Substance: EPCORITAMAB
     Dosage: 48 MILLIGRAM
     Route: 065
     Dates: end: 20240507
  3. ACALABRUTINIB [Concomitant]
     Active Substance: ACALABRUTINIB
     Dosage: 1 DOSAGE FORM DAILY (11 REFILLS)
     Route: 048
  4. BACTRIM DS [Concomitant]
     Active Substance: SULFAMETHOXAZOLE\TRIMETHOPRIM
     Dosage: UNK (10 REFILLS)
     Route: 048
  5. COLACE [Concomitant]
     Active Substance: DOCUSATE SODIUM
     Dosage: 1 DOSAGE FORM, BID, PRN
     Route: 048
  6. DEXTROSE [Concomitant]
     Active Substance: DEXTROSE\DEXTROSE MONOHYDRATE
     Dosage: 5 PERCENT IN WATER INTERMITTENT, 250 ML
     Route: 042
  7. DEXTROSE [Concomitant]
     Active Substance: DEXTROSE\DEXTROSE MONOHYDRATE
     Dosage: 5 PERCENT IN WATER INTERMITTENT, 250 ML
     Route: 042
  8. VITAMINS [Concomitant]
     Active Substance: VITAMINS
     Dosage: UNK DAILY
     Route: 048
  9. OXYCODONE [Concomitant]
     Active Substance: OXYCODONE
     Dosage: 1 DOSAGE FORM, Q6H, PRN
     Route: 048
  10. POLYETHYLENE GLYCOL 3350 [Concomitant]
     Active Substance: POLYETHYLENE GLYCOL 3350
     Dosage: 510 GRAM (3 REFILLS)
     Route: 065
  11. PROAIR HFA [Concomitant]
     Active Substance: ALBUTEROL SULFATE
     Dosage: 2 DOSAGE FORM, Q4H, PRN (3 REFILLS)
  12. SODIUM CHLORIDE [Concomitant]
     Active Substance: SODIUM CHLORIDE
     Dosage: 0.9 PERCENT INTERMITTENT INF, 250 ML DAY OF TX
     Route: 042
  13. TYLENOL [Concomitant]
     Active Substance: ACETAMINOPHEN
     Dosage: 500 MILLIGRAM, Q4H
     Route: 048
  14. VALACYCLOVIR [Concomitant]
     Active Substance: VALACYCLOVIR HYDROCHLORIDE
     Dosage: 1 DOSAGE FORM DAILY (3 REFILLS)
     Route: 048
  15. VITAMIN D3 [Concomitant]
     Active Substance: CHOLECALCIFEROL
     Dosage: UNK
     Route: 065
  16. TOCILIZUMAB [Concomitant]
     Active Substance: TOCILIZUMAB
     Indication: Prophylaxis
     Dosage: UNK
     Route: 065

REACTIONS (7)
  - Pericardial effusion [Recovering/Resolving]
  - Pericarditis [Unknown]
  - Mean cell volume increased [Unknown]
  - Mean cell haemoglobin increased [Unknown]
  - Blood urea increased [Unknown]
  - Blood creatinine increased [Unknown]
  - Haemoglobin decreased [Unknown]

NARRATIVE: CASE EVENT DATE: 20240712
